FAERS Safety Report 15824500 (Version 1)
Quarter: 2019Q1

REPORT INFORMATION
  Report Type: Spontaneous
  Country: CN (occurrence: CN)
  Receive Date: 20190115
  Receipt Date: 20190115
  Transmission Date: 20190417
  Serious: Yes (Other)
  Sender: FDA-Public Use
  Company Number: CN-ROCHE-2239589

PATIENT
  Age: 53 Year
  Sex: Male

DRUGS (13)
  1. BEVACIZUMAB. [Suspect]
     Active Substance: BEVACIZUMAB
     Indication: COLON CANCER
     Dosage: 7 COURSES
     Route: 065
     Dates: start: 20131014, end: 20140224
  2. OXALIPLATIN. [Concomitant]
     Active Substance: OXALIPLATIN
     Indication: METASTASES TO LIVER
  3. IRINOTECAN [Concomitant]
     Active Substance: IRINOTECAN
     Indication: COLON CANCER
     Dosage: 8 COURSES
     Route: 065
     Dates: start: 20131014, end: 20140224
  4. FLUOROURACIL. [Concomitant]
     Active Substance: FLUOROURACIL
     Indication: COLON CANCER
     Dosage: 8 COURSES
     Route: 065
     Dates: start: 20131014, end: 20140224
  5. FLUOROURACIL. [Concomitant]
     Active Substance: FLUOROURACIL
     Indication: METASTASES TO LIVER
     Dosage: 4 COURSES
     Route: 065
     Dates: start: 20140610, end: 20140901
  6. FOLINIC ACID [Concomitant]
     Active Substance: LEUCOVORIN
     Indication: COLON CANCER
     Dosage: 8 COURSES
     Route: 065
     Dates: start: 20131014, end: 20140224
  7. TETRAHYDROFOLIC ACID [Concomitant]
     Indication: COLON CANCER
     Dosage: 3 COURSES
     Route: 065
     Dates: start: 20161213, end: 20170212
  8. TETRAHYDROFOLIC ACID [Concomitant]
     Indication: METASTASES TO LIVER
  9. BEVACIZUMAB. [Suspect]
     Active Substance: BEVACIZUMAB
     Indication: METASTASES TO LIVER
     Dosage: 4 COURSES
     Route: 065
     Dates: start: 20140610, end: 20140901
  10. OXALIPLATIN. [Concomitant]
     Active Substance: OXALIPLATIN
     Indication: COLON CANCER
     Dosage: 3 COURSES
     Route: 065
     Dates: start: 20161213, end: 20170212
  11. IRINOTECAN [Concomitant]
     Active Substance: IRINOTECAN
     Indication: METASTASES TO LIVER
     Dosage: 4 COURSES
     Route: 065
     Dates: start: 20140610, end: 20140901
  12. FLUOROURACIL. [Concomitant]
     Active Substance: FLUOROURACIL
     Dosage: 3 COURSES
     Route: 065
     Dates: start: 20161213, end: 20170212
  13. FOLINIC ACID [Concomitant]
     Active Substance: LEUCOVORIN
     Indication: METASTASES TO LIVER
     Dosage: 4 COURSES
     Route: 065
     Dates: start: 20140610, end: 20140901

REACTIONS (4)
  - Hepatic function abnormal [Unknown]
  - Bone marrow failure [Unknown]
  - Vomiting [Unknown]
  - Decreased appetite [Unknown]
